FAERS Safety Report 5833841-4 (Version None)
Quarter: 2008Q3

REPORT INFORMATION
  Report Type: 
  Country: None (occurrence: None)
  Receive Date: 20080801
  Receipt Date: 20080801
  Transmission Date: 20090109
  Serious: Yes (Disabling, Other)
  Sender: FDA-Public Use
  Company Number: None

PATIENT
  Age: 42 Year
  Sex: Female
  Weight: 136.0791 kg

DRUGS (1)
  1. PAXIL [Suspect]
     Indication: PANIC ATTACK
     Dosage: 20 MG 1 X A DAY PO
     Route: 048
     Dates: start: 20020920, end: 20071130

REACTIONS (23)
  - AFFECT LABILITY [None]
  - ANGER [None]
  - ANORGASMIA [None]
  - ANXIETY [None]
  - APHASIA [None]
  - CONDITION AGGRAVATED [None]
  - DIZZINESS [None]
  - FEELING ABNORMAL [None]
  - HYPERACUSIS [None]
  - MALAISE [None]
  - NAUSEA [None]
  - NERVOUS SYSTEM DISORDER [None]
  - NEUROLOGICAL SYMPTOM [None]
  - PAIN [None]
  - PANIC ATTACK [None]
  - PARAESTHESIA [None]
  - PAROSMIA [None]
  - PHOTOPHOBIA [None]
  - SOMNOLENCE [None]
  - TINNITUS [None]
  - URINARY INCONTINENCE [None]
  - VERTIGO [None]
  - WEIGHT INCREASED [None]
